FAERS Safety Report 25776668 (Version 1)
Quarter: 2025Q3

REPORT INFORMATION
  Report Type: Spontaneous
  Country: US (occurrence: US)
  Receive Date: 20250909
  Receipt Date: 20250909
  Transmission Date: 20251020
  Serious: No
  Sender: DOMPE FARMACEUTICI
  Company Number: US-FARMAPROD-202409-3151

PATIENT
  Sex: Female

DRUGS (11)
  1. OXERVATE [Suspect]
     Active Substance: CENEGERMIN-BKBJ
     Indication: Neurotrophic keratopathy
     Route: 047
     Dates: start: 20240826
  2. TYRVAYA [Concomitant]
     Active Substance: VARENICLINE TARTRATE
  3. MIEBO [Concomitant]
     Active Substance: PERFLUOROHEXYLOCTANE
  4. OFLOXACIN [Concomitant]
     Active Substance: OFLOXACIN
  5. CEQUA [Concomitant]
     Active Substance: CYCLOSPORINE
  6. FISH OIL [Concomitant]
     Active Substance: FISH OIL
  7. BACLOFEN [Concomitant]
     Active Substance: BACLOFEN
  8. ENBREL [Concomitant]
     Active Substance: ETANERCEPT
  9. LISINOPRIL [Concomitant]
     Active Substance: LISINOPRIL
  10. GABAPENTIN [Concomitant]
     Active Substance: GABAPENTIN
  11. METOPROLOL SUCCINATE [Concomitant]
     Active Substance: METOPROLOL SUCCINATE

REACTIONS (1)
  - Headache [Recovered/Resolved]
